FAERS Safety Report 7960907-5 (Version None)
Quarter: 2011Q4

REPORT INFORMATION
  Report Type: 
  Country: None (occurrence: None)
  Receive Date: 20111121
  Receipt Date: 20111018
  Transmission Date: 20120403
  Serious: No
  Sender: FDA-Public Use
  Company Number: 1000024808

PATIENT
  Age: 42 Year
  Sex: Male

DRUGS (5)
  1. GLUCOSAMINE (GLUCOSAMINE) (GLUCOSAMINE) [Concomitant]
  2. VIIBRYD [Suspect]
     Indication: DEPRESSION
     Dosage: 10 MG (10 MG, 1 IN 1 D), ORAL 20 MG (20 MG, 1 IN 1 D), ORAL 40 MG (40 MG, 1 IN 1 D), ORAL
     Route: 048
     Dates: start: 20110901, end: 20110101
  3. VIIBRYD [Suspect]
     Indication: DEPRESSION
     Dosage: 10 MG (10 MG, 1 IN 1 D), ORAL 20 MG (20 MG, 1 IN 1 D), ORAL 40 MG (40 MG, 1 IN 1 D), ORAL
     Route: 048
     Dates: start: 20110101, end: 20111001
  4. VIIBRYD [Suspect]
     Indication: DEPRESSION
     Dosage: 10 MG (10 MG, 1 IN 1 D), ORAL 20 MG (20 MG, 1 IN 1 D), ORAL 40 MG (40 MG, 1 IN 1 D), ORAL
     Route: 048
     Dates: start: 20111001
  5. MULTIVITAMIN (MULTIVITAMIN) (MULTIVITAMIN) [Concomitant]

REACTIONS (2)
  - INSOMNIA [None]
  - SENSATION OF FOREIGN BODY [None]
